FAERS Safety Report 6041779-5 (Version None)
Quarter: 2009Q1

REPORT INFORMATION
  Report Type: 
  Country: None (occurrence: None)
  Receive Date: 20090116
  Receipt Date: 20090108
  Transmission Date: 20090719
  Serious: Yes (Other)
  Sender: FDA-Public Use
  Company Number: US-PFIZER INC-2009153579

PATIENT
  Sex: Female
  Weight: 68.027 kg

DRUGS (9)
  1. LYRICA [Suspect]
     Indication: NEURALGIA
     Dosage: 50 MG, UNK
     Dates: start: 20080101
  2. LYRICA [Suspect]
     Indication: FIBROMYALGIA
  3. CELEBREX [Suspect]
     Indication: BACK PAIN
     Dosage: UNK
     Dates: start: 19980101
  4. PRAVACHOL [Suspect]
     Indication: BLOOD CHOLESTEROL INCREASED
     Dosage: 10 MG, UNK
  5. LORAZEPAM [Concomitant]
     Indication: ANXIETY
     Dosage: UNK
  6. ATENOLOL [Concomitant]
     Dosage: UNK
  7. MAXZIDE [Concomitant]
     Dosage: UNK
  8. AGGRENOX [Concomitant]
     Dosage: UNK
  9. ACETYLSALICYLIC ACID [Concomitant]
     Dosage: UNK

REACTIONS (23)
  - ABDOMINAL DISTENSION [None]
  - ARTHRALGIA [None]
  - BLOOD CHOLESTEROL INCREASED [None]
  - BLOOD POTASSIUM DECREASED [None]
  - CEREBROVASCULAR ACCIDENT [None]
  - CONSTIPATION [None]
  - DIZZINESS [None]
  - EYE PRURITUS [None]
  - FLATULENCE [None]
  - HEADACHE [None]
  - INCREASED APPETITE [None]
  - JOINT SWELLING [None]
  - LACRIMATION INCREASED [None]
  - LUPUS-LIKE SYNDROME [None]
  - MYALGIA [None]
  - NAUSEA [None]
  - OEDEMA PERIPHERAL [None]
  - PRURITUS [None]
  - RHEUMATOID ARTHRITIS [None]
  - ROAD TRAFFIC ACCIDENT [None]
  - VARICOSE VEIN [None]
  - VISION BLURRED [None]
  - WEIGHT INCREASED [None]
